FAERS Safety Report 7174341-1 (Version None)
Quarter: 2010Q4

REPORT INFORMATION
  Report Type: 
  Country: None (occurrence: None)
  Receive Date: 20101219
  Receipt Date: 20100324
  Transmission Date: 20110411
  Serious: No
  Sender: FDA-Public Use
  Company Number: US-AMGEN-KDL401684

PATIENT

DRUGS (7)
  1. ENBREL [Suspect]
     Indication: PRODUCT USED FOR UNKNOWN INDICATION
     Dosage: 50 MG, QWK
     Route: 058
  2. CELECOXIB [Concomitant]
     Dosage: 100 MG, UNK
     Route: 048
  3. FEXOFENADINE HCL [Concomitant]
  4. FOLIC ACID [Concomitant]
     Dosage: 1 MG, UNK
     Route: 048
  5. CYANOCOBALAMIN [Concomitant]
     Dosage: 500 A?G, UNK
     Route: 048
  6. ESTRADIOL [Concomitant]
     Dosage: 1 MG, UNK
     Route: 048
  7. MULTI-VITAMINS [Concomitant]
     Dosage: UNK UNK, UNK
     Route: 048

REACTIONS (2)
  - INJECTION SITE RASH [None]
  - INJECTION SITE REACTION [None]
